FAERS Safety Report 21033210 (Version 2)
Quarter: 2022Q3

REPORT INFORMATION
  Report Type: Spontaneous
  Country: DE (occurrence: DE)
  Receive Date: 20220701
  Receipt Date: 20220721
  Transmission Date: 20221027
  Serious: Yes (Other)
  Sender: FDA-Public Use
  Company Number: DE-BoehringerIngelheim-2022-BI-179520

PATIENT
  Age: 51 Year
  Sex: Female
  Weight: 85 kg

DRUGS (15)
  1. JARDIANCE [Suspect]
     Active Substance: EMPAGLIFLOZIN
     Indication: Type 2 diabetes mellitus
     Route: 048
     Dates: start: 20170120
  2. JARDIANCE [Suspect]
     Active Substance: EMPAGLIFLOZIN
     Route: 048
     Dates: start: 20220525, end: 20220630
  3. Insulin Glargin - Lantus 100 E/ml SoloStar in prefilled syringe [Concomitant]
     Indication: Type 2 diabetes mellitus
     Dosage: 100 E/ML
     Dates: start: 2016
  4. Pantoprazol Denk 40 mg gastro-resistant Tablets [Concomitant]
     Indication: Gastric disorder
     Dosage: 1-0-0-0
  5. Amlodipin - 1APharma 5 mg Tablets [Concomitant]
     Indication: Blood pressure abnormal
     Dosage: 0-1-0-0
  6. Torasemid STADA 5 mg Tablets [Concomitant]
     Indication: Blood pressure abnormal
     Dosage: 0-1-0-0
     Dates: end: 20220630
  7. Torasemid STADA 5 mg Tablets [Concomitant]
     Indication: Dehydration
  8. Bisoprolol Dexcel 10 mg Tablets [Concomitant]
     Indication: Blood pressure abnormal
     Dosage: 0-0-1-0
  9. CANDESARPLUS AL 32 mg/25 mg Tablets [Concomitant]
     Indication: Blood pressure abnormal
     Dosage: 1-0-0-0
  10. Moxonidin - 1 A Pharma 0.3 mg Film-coated tablets [Concomitant]
     Indication: Blood pressure abnormal
     Dosage: 1-0-1-0
  11. Sertralin beta 50 mg Film-coated tablets [Concomitant]
     Indication: Depression
     Dosage: 1-0-0-0
  12. Metformin Lich 1000 mg Film-coated tablets [Concomitant]
     Indication: Type 2 diabetes mellitus
     Dosage: 1-0-1-0
  13. Trulicity 3.0 mg solution for injection in prefilled syringe [Concomitant]
     Indication: Type 2 diabetes mellitus
     Dosage: 1XWEEK ON FRIDAY
  14. Pregabalin AL 300 mg HKP [Concomitant]
     Indication: Pain
     Dosage: 1-0-1-0
  15. Folic Acid AbZ 5 mg Tablets [Concomitant]
     Indication: Product used for unknown indication
     Dosage: 1-0-0-0

REACTIONS (1)
  - Ketoacidosis [Recovered/Resolved]

NARRATIVE: CASE EVENT DATE: 20220630
